FAERS Safety Report 8353287-7 (Version None)
Quarter: 2012Q2

REPORT INFORMATION
  Report Type: 
  Country: None (occurrence: None)
  Receive Date: 20120511
  Receipt Date: 20120507
  Transmission Date: 20120825
  Serious: Yes (Other)
  Sender: FDA-Public Use
  Company Number: ES-B.I. PHARMACEUTICALS,INC./RIDGEFIELD-2012-EU-02576BY

PATIENT
  Age: 76 Year
  Sex: Male

DRUGS (7)
  1. SILDENAFIL [Suspect]
     Indication: PULMONARY HYPERTENSION
     Dosage: 60 MG
     Route: 048
     Dates: start: 20120316, end: 20120326
  2. ARTEDIL [Suspect]
     Indication: HYPERTENSIVE HEART DISEASE
     Dosage: 10 MG
     Route: 048
     Dates: end: 20120318
  3. SINTROM [Suspect]
     Indication: PULMONARY EMBOLISM
     Route: 048
  4. CARDURA [Suspect]
     Indication: HYPERTENSIVE HEART DISEASE
     Dosage: 8 MG
     Route: 048
  5. CELECOXIB [Suspect]
     Indication: OSTEOARTHRITIS
     Dosage: 200 MG
     Route: 048
  6. TELMISARTAN AND HYDROCHLOROTHIAZIDE [Suspect]
     Indication: HYPERTENSIVE HEART DISEASE
     Dosage: 1 ANZ
     Route: 048
     Dates: end: 20120318
  7. NOLOTIL [Suspect]
     Indication: OSTEOARTHRITIS
     Route: 048

REACTIONS (3)
  - DYSPNOEA [None]
  - RIGHT VENTRICULAR FAILURE [None]
  - HYPOTENSION [None]
